FAERS Safety Report 21583873 (Version 3)
Quarter: 2022Q4

REPORT INFORMATION
  Report Type: Spontaneous
  Country: JP (occurrence: JP)
  Receive Date: 20221111
  Receipt Date: 20221214
  Transmission Date: 20230112
  Serious: Yes (Other)
  Sender: FDA-Public Use
  Company Number: JP-BAYER-2022A156115

PATIENT
  Age: 8 Decade
  Sex: Female

DRUGS (1)
  1. IOPROMIDE [Suspect]
     Active Substance: IOPROMIDE
     Indication: Computerised tomogram
     Dosage: UNK UNK, ONCE
     Route: 042
     Dates: start: 20220609, end: 20220609

REACTIONS (1)
  - Kounis syndrome [Recovering/Resolving]

NARRATIVE: CASE EVENT DATE: 20220609
